FAERS Safety Report 22664134 (Version 14)
Quarter: 2024Q4

REPORT INFORMATION
  Report Type: Report from Study
  Country: JP (occurrence: JP)
  Receive Date: 20230703
  Receipt Date: 20241127
  Transmission Date: 20250114
  Serious: Yes (Hospitalization, Other)
  Sender: TAKEDA
  Company Number: JP-TAKEDA-2023TJP005551

PATIENT
  Age: 48 Year
  Sex: Male

DRUGS (5)
  1. TEDUGLUTIDE [Suspect]
     Active Substance: TEDUGLUTIDE
     Indication: Short-bowel syndrome
     Dosage: 3.8 MILLIGRAM, QD
     Dates: start: 20230501
  2. TEDUGLUTIDE [Suspect]
     Active Substance: TEDUGLUTIDE
     Dosage: UNK
  3. TEDUGLUTIDE [Suspect]
     Active Substance: TEDUGLUTIDE
  4. TEDUGLUTIDE [Suspect]
     Active Substance: TEDUGLUTIDE
  5. ENTYVIO [Suspect]
     Active Substance: VEDOLIZUMAB
     Indication: Product used for unknown indication
     Dosage: UNK

REACTIONS (16)
  - Abdominal adhesions [Recovering/Resolving]
  - Gastrointestinal perforation [Recovering/Resolving]
  - Cerebral haemorrhage [Recovered/Resolved]
  - Vascular device infection [Unknown]
  - Psoas abscess [Unknown]
  - Muscular weakness [Recovering/Resolving]
  - Dysarthria [Recovering/Resolving]
  - Crohn^s disease [Recovered/Resolved]
  - Back pain [Unknown]
  - Back pain [Unknown]
  - Erythema [Recovered/Resolved]
  - Swelling [Recovered/Resolved]
  - Weight decreased [Unknown]
  - Diarrhoea [Unknown]
  - Injection site rash [Unknown]
  - Drug ineffective [Unknown]

NARRATIVE: CASE EVENT DATE: 20230508
